FAERS Safety Report 22243742 (Version 2)
Quarter: 2023Q2

REPORT INFORMATION
  Report Type: Report from Study
  Country: FR (occurrence: FR)
  Receive Date: 20230424
  Receipt Date: 20230515
  Transmission Date: 20230721
  Serious: Yes (Other)
  Sender: FDA-Public Use
  Company Number: FR-PFIZER INC-202300162037

PATIENT
  Age: 85 Year
  Sex: Female

DRUGS (3)
  1. NIRMATRELVIR\RITONAVIR [Interacting]
     Active Substance: NIRMATRELVIR\RITONAVIR
     Indication: COVID-19
     Dosage: UNK
     Route: 048
  2. CLINDAMYCIN HYDROCHLORIDE [Interacting]
     Active Substance: CLINDAMYCIN HYDROCHLORIDE
     Indication: Immunosuppressant drug therapy
     Dosage: UNK
  3. RIFAMPIN [Interacting]
     Active Substance: RIFAMPIN
     Indication: Immunosuppressant drug therapy
     Dosage: UNK

REACTIONS (5)
  - Labelled drug-drug interaction medication error [Unknown]
  - Drug interaction [Unknown]
  - Drug level increased [Unknown]
  - Contraindicated product administered [Unknown]
  - Hepatic cytolysis [Unknown]
